FAERS Safety Report 7528127-6 (Version None)
Quarter: 2011Q2

REPORT INFORMATION
  Report Type: 
  Country: None (occurrence: None)
  Receive Date: 20110607
  Receipt Date: 20100927
  Transmission Date: 20111010
  Serious: Yes (Other)
  Sender: FDA-Public Use
  Company Number: US-ASTRAZENECA-2010SE45316

PATIENT
  Age: 70 Year
  Sex: Female
  Weight: 74 kg

DRUGS (6)
  1. LEVOTHYROXINE SODIUM [Concomitant]
     Indication: HYPOTHYROIDISM
  2. XALATAN [Suspect]
     Indication: INTRAOCULAR PRESSURE INCREASED
     Dosage: ONE DROP IN LEFT EYE, DAILY, AT NIGHT, OPTHALMIC
     Route: 047
     Dates: start: 20100914
  3. CARDIZEM [Suspect]
     Indication: HYPERTENSION
  4. AMIODARONE HCL [Concomitant]
     Indication: ARRHYTHMIA
  5. PRILOSEC [Suspect]
     Indication: GASTROOESOPHAGEAL REFLUX DISEASE
     Route: 048
  6. AMIODARONE HCL [Concomitant]
     Indication: HEART RATE INCREASED

REACTIONS (2)
  - CHEST PAIN [None]
  - DYSPEPSIA [None]
